FAERS Safety Report 17628137 (Version 1)
Quarter: 2020Q2

REPORT INFORMATION
  Report Type: Spontaneous
  Country: ES (occurrence: ES)
  Receive Date: 20200405
  Receipt Date: 20200405
  Transmission Date: 20200713
  Serious: Yes (Hospitalization)
  Sender: FDA-Public Use
  Company Number: ES-ASTRAZENECA-2020SE44864

PATIENT
  Age: 82 Year
  Sex: Female

DRUGS (9)
  1. ESCITALOPRAM [Concomitant]
     Active Substance: ESCITALOPRAM OXALATE
     Dosage: 20 MG/ML ORAL DROPS SOLUTION, 1 BOTTLE OF 15 ML
     Route: 065
  2. ADIRO [Concomitant]
     Active Substance: ASPIRIN
     Route: 065
  3. PANTOPRAZOL ALMUS [Concomitant]
     Dosage: 20.0MG UNKNOWN
     Route: 065
  4. GABAPENTINA ALMUS [Concomitant]
     Route: 065
  5. QUETIAPINA [Suspect]
     Active Substance: QUETIAPINE
     Dosage: 12,5
     Route: 048
     Dates: start: 20200212, end: 20200213
  6. TRANGOREX [Concomitant]
     Active Substance: AMIODARONE HYDROCHLORIDE
     Route: 065
  7. AZOPT [Concomitant]
     Active Substance: BRINZOLAMIDE
     Route: 065
  8. RIVOTRIL [Concomitant]
     Active Substance: CLONAZEPAM
     Dosage: 0.5MG 60 TABLETS
     Route: 065
  9. STALEVO [Concomitant]
     Active Substance: CARBIDOPA\ENTACAPONE\LEVODOPA
     Route: 065

REACTIONS (3)
  - Sopor [Recovering/Resolving]
  - Depressed level of consciousness [Recovering/Resolving]
  - Somnolence [Recovering/Resolving]

NARRATIVE: CASE EVENT DATE: 20200213
